FAERS Safety Report 24791288 (Version 1)
Quarter: 2024Q4

REPORT INFORMATION
  Report Type: Report from Study
  Country: AT (occurrence: AT)
  Receive Date: 20241230
  Receipt Date: 20241230
  Transmission Date: 20250115
  Serious: Yes (Hospitalization, Other)
  Sender: JOHNSON AND JOHNSON
  Company Number: AT-BAYER-2024A170461

PATIENT
  Age: 63 Year

DRUGS (1)
  1. VENTAVIS [Suspect]
     Active Substance: ILOPROST
     Indication: Product used for unknown indication
     Dosage: UNK
     Route: 065
     Dates: start: 20240918

REACTIONS (2)
  - Hospitalisation [Unknown]
  - Lung transplant [Unknown]

NARRATIVE: CASE EVENT DATE: 20241001
